FAERS Safety Report 13997370 (Version 1)
Quarter: 2017Q3

REPORT INFORMATION
  Report Type: Spontaneous
  Country: US (occurrence: US)
  Receive Date: 20170921
  Receipt Date: 20170921
  Transmission Date: 20171128
  Serious: No
  Sender: FDA-Public Use
  Company Number: US-009507513-1709USA010542

PATIENT
  Age: 58 Year
  Sex: Male

DRUGS (10)
  1. CLONIDINE. [Concomitant]
     Active Substance: CLONIDINE
  2. CHOLECALCIFEROL [Concomitant]
     Active Substance: CHOLECALCIFEROL
  3. FLOMAX [Concomitant]
     Active Substance: TAMSULOSIN HYDROCHLORIDE
  4. METHADONE HYDROCHLORIDE. [Concomitant]
     Active Substance: METHADONE HYDROCHLORIDE
  5. PERCOCET [Concomitant]
     Active Substance: ACETAMINOPHEN\OXYCODONE HYDROCHLORIDE
  6. ZEPATIER [Suspect]
     Active Substance: ELBASVIR\GRAZOPREVIR
     Indication: HEPATITIS C
     Dosage: UNK
     Route: 048
     Dates: start: 20170808
  7. OXYBUTYNIN [Concomitant]
     Active Substance: OXYBUTYNIN
  8. DONEPEZIL. [Concomitant]
     Active Substance: DONEPEZIL
  9. GABAPENTIN. [Concomitant]
     Active Substance: GABAPENTIN
  10. ROPINIROLE. [Concomitant]
     Active Substance: ROPINIROLE

REACTIONS (3)
  - Lung disorder [Not Recovered/Not Resolved]
  - Pruritus [Not Recovered/Not Resolved]
  - Nodule [Not Recovered/Not Resolved]

NARRATIVE: CASE EVENT DATE: 2017
